FAERS Safety Report 21103336 (Version 1)
Quarter: 2022Q3

REPORT INFORMATION
  Report Type: Spontaneous
  Country: US (occurrence: US)
  Receive Date: 20220720
  Receipt Date: 20220720
  Transmission Date: 20221026
  Serious: Yes (Other)
  Sender: FDA-Public Use
  Company Number: US-BRISTOL-MYERS SQUIBB COMPANY-2022-072257

PATIENT
  Age: 77 Year
  Sex: Male
  Weight: 81 kg

DRUGS (19)
  1. REVLIMID [Suspect]
     Active Substance: LENALIDOMIDE
     Indication: Plasma cell myeloma
     Dosage: FREQUENCY: 1X21 DAYS/28 DAYS
     Route: 048
     Dates: start: 20220615, end: 20220711
  2. LACTOBACILLUS ACIDOPHILUS [Concomitant]
     Active Substance: LACTOBACILLUS ACIDOPHILUS
     Indication: Product used for unknown indication
     Dosage: DAILY
     Route: 048
     Dates: start: 20220610
  3. ACYCLOVIR [Concomitant]
     Active Substance: ACYCLOVIR
     Indication: Product used for unknown indication
     Route: 048
     Dates: start: 20220602
  4. AMOXICILLIN [Concomitant]
     Active Substance: AMOXICILLIN
     Indication: Product used for unknown indication
     Route: 048
     Dates: start: 20220602, end: 20220610
  5. DEXAMETHASONE [Concomitant]
     Active Substance: DEXAMETHASONE
     Indication: Product used for unknown indication
     Route: 048
     Dates: start: 20220602
  6. DOXYCYCLINE HYCLATE [Concomitant]
     Active Substance: DOXYCYCLINE HYCLATE
     Indication: Product used for unknown indication
     Route: 048
     Dates: start: 20220602, end: 20220610
  7. GABAPENTIN [Concomitant]
     Active Substance: GABAPENTIN
     Indication: Product used for unknown indication
     Route: 048
     Dates: start: 20220602
  8. MINERALS\OMEGA-3 FATTY ACIDS\VITAMINS [Concomitant]
     Active Substance: MINERALS\OMEGA-3 FATTY ACIDS\VITAMINS
     Indication: Product used for unknown indication
     Dosage: OTC
     Route: 047
     Dates: start: 20220610
  9. IP-6 inositol [Concomitant]
     Indication: Product used for unknown indication
     Dosage: ROUTE: EAR, 2 CAPSULES
     Route: 050
     Dates: start: 20220610
  10. MUCINEX [Concomitant]
     Active Substance: GUAIFENESIN
     Indication: Product used for unknown indication
     Dosage: PRN?TABLET EXTENDED RELEASE
     Route: 048
     Dates: start: 20220610
  11. MULTIVITAMIN MEN [Concomitant]
     Indication: Product used for unknown indication
     Route: 048
     Dates: start: 20220610
  12. OMEGA 3 2100 [Concomitant]
     Indication: Product used for unknown indication
     Route: 048
     Dates: start: 20220610
  13. ONDANSETRON HCL [Concomitant]
     Active Substance: ONDANSETRON HYDROCHLORIDE
     Indication: Product used for unknown indication
     Route: 048
     Dates: start: 20220602
  14. PA VITAMIN D3 [Concomitant]
     Indication: Product used for unknown indication
     Route: 048
     Dates: start: 20220602
  15. PREDNISONE [Concomitant]
     Active Substance: PREDNISONE
     Indication: Product used for unknown indication
     Route: 048
     Dates: start: 20220602, end: 20220610
  16. RA ZINC [Concomitant]
     Indication: Product used for unknown indication
     Route: 048
     Dates: start: 20220610
  17. RETAINE CMC [Concomitant]
     Indication: Product used for unknown indication
     Route: 047
     Dates: start: 20220610
  18. SM GLUCOSAMINE HCL [Concomitant]
     Indication: Product used for unknown indication
     Dosage: DAILY
     Route: 048
     Dates: start: 20220610
  19. XARELTO [Concomitant]
     Active Substance: RIVAROXABAN
     Indication: Product used for unknown indication
     Route: 048
     Dates: start: 20220602, end: 20220610

REACTIONS (1)
  - Deep vein thrombosis [Recovering/Resolving]

NARRATIVE: CASE EVENT DATE: 20220623
